FAERS Safety Report 19289404 (Version 7)
Quarter: 2022Q2

REPORT INFORMATION
  Report Type: Spontaneous
  Country: US (occurrence: US)
  Receive Date: 20210521
  Receipt Date: 20220602
  Transmission Date: 20220721
  Serious: No
  Sender: FDA-Public Use
  Company Number: US-PFIZER INC-2021475856

PATIENT
  Age: 63 Year
  Sex: Female
  Weight: 84.82 kg

DRUGS (4)
  1. IBRANCE [Suspect]
     Active Substance: PALBOCICLIB
     Dosage: UNK
  2. LETROZOLE [Concomitant]
     Active Substance: LETROZOLE
     Dosage: 2.5 MG
  3. TRAMADOL [Concomitant]
     Active Substance: TRAMADOL
     Dosage: 50 MG
  4. PREGABALIN [Concomitant]
     Active Substance: PREGABALIN
     Indication: Neuralgia
     Dosage: 50 MG

REACTIONS (24)
  - Dysphagia [Unknown]
  - Food poisoning [Unknown]
  - Malaise [Unknown]
  - Arthritis [Unknown]
  - Oral pain [Unknown]
  - Glossodynia [Unknown]
  - Alopecia [Unknown]
  - Toothache [Recovered/Resolved]
  - Speech disorder [Unknown]
  - Nausea [Not Recovered/Not Resolved]
  - Fatigue [Unknown]
  - White blood cell count decreased [Unknown]
  - Tooth disorder [Unknown]
  - Tongue disorder [Unknown]
  - Somnolence [Unknown]
  - Gastric disorder [Unknown]
  - Euphoric mood [Unknown]
  - Migraine [Unknown]
  - Feeling abnormal [Unknown]
  - Memory impairment [Unknown]
  - Distractibility [Unknown]
  - Oropharyngeal pain [Unknown]
  - Weight increased [Unknown]
  - Cough [Unknown]
